FAERS Safety Report 8508742-3 (Version None)
Quarter: 2012Q3

REPORT INFORMATION
  Report Type: 
  Country: None (occurrence: None)
  Receive Date: 20120713
  Receipt Date: 20120710
  Transmission Date: 20120928
  Serious: No
  Sender: FDA-Public Use
  Company Number: US-PFIZER INC-2012139997

PATIENT
  Sex: Male

DRUGS (2)
  1. VISTARIL [Suspect]
     Dosage: 25 MG, TWICE DAILY
     Route: 048
  2. VISTARIL [Suspect]
     Dosage: 50 MG, EVERY BEDTIME (QHS)
     Route: 048

REACTIONS (1)
  - MENTAL DISORDER [None]
